FAERS Safety Report 22227775 (Version 5)
Quarter: 2024Q4

REPORT INFORMATION
  Report Type: Spontaneous
  Country: CA (occurrence: CA)
  Receive Date: 20230419
  Receipt Date: 20241204
  Transmission Date: 20250114
  Serious: Yes (Other)
  Sender: PFIZER
  Company Number: CA-PFIZER INC-202300026187

PATIENT
  Age: 48 Year
  Sex: Male
  Weight: 64 kg

DRUGS (8)
  1. ABRILADA [Suspect]
     Active Substance: ADALIMUMAB-AFZB
     Indication: Crohn^s disease
     Dosage: 40 MG, EVERY 2 WEEK INDUCTION 160MG WEEK 0, 80MG WEEK 2, THEN 40MG STARTING WEEK 4
     Route: 058
     Dates: start: 20220721, end: 2023
  2. ABRILADA [Suspect]
     Active Substance: ADALIMUMAB-AFZB
     Dosage: 40 MG, EVERY 2 WEEK INDUCTION 160MG WEEK 0, 80MG WEEK 2, THEN 40MG STARTING WEEK 4
     Route: 058
     Dates: start: 20230106
  3. ABRILADA [Suspect]
     Active Substance: ADALIMUMAB-AFZB
     Dosage: 40 MG, EVERY 2 WEEK INDUCTION 160MG WEEK 0, 80MG WEEK 2, THEN 40MG STARTING WEEK 4
     Route: 058
     Dates: start: 20230303
  4. ABRILADA [Suspect]
     Active Substance: ADALIMUMAB-AFZB
     Dosage: 40 MG, EVERY 2 WEEK INDUCTION 160MG WEEK 0, 80MG WEEK 2, THEN 40MG STARTING WEEK 4
     Route: 058
     Dates: start: 20230415
  5. ABRILADA [Suspect]
     Active Substance: ADALIMUMAB-AFZB
     Dosage: 40 MG, WEEKLY
     Route: 058
     Dates: start: 2023
  6. ABRILADA [Suspect]
     Active Substance: ADALIMUMAB-AFZB
     Dosage: 40 MG, WEEKLY
     Route: 058
     Dates: start: 20241124
  7. AZATHIOPRINE [Concomitant]
     Active Substance: AZATHIOPRINE
     Dosage: 50 MG, 1X/DAY
  8. RIFAMPIN [Concomitant]
     Active Substance: RIFAMPIN
     Dosage: 600 MG, 1X/DAY, 4 MONTHS (PPD POSITIVE RESULT)

REACTIONS (6)
  - Haematochezia [Not Recovered/Not Resolved]
  - Off label use [Unknown]
  - Haemorrhoidal haemorrhage [Unknown]
  - Diarrhoea [Not Recovered/Not Resolved]
  - Tuberculin test positive [Unknown]
  - Condition aggravated [Unknown]

NARRATIVE: CASE EVENT DATE: 20230101
